FAERS Safety Report 21818683 (Version 5)
Quarter: 2023Q1

REPORT INFORMATION
  Report Type: Spontaneous
  Country: US (occurrence: US)
  Receive Date: 20230104
  Receipt Date: 20230207
  Transmission Date: 20230417
  Serious: Yes (Other)
  Sender: FDA-Public Use
  Company Number: US-PFIZER INC-202201400696

PATIENT
  Sex: Female

DRUGS (1)
  1. GENOTROPIN [Suspect]
     Active Substance: SOMATROPIN
     Dosage: 1 MG, DAILY (CARTRIDGE POPPED INSIDE PEN, AND MEDICINE SQUIRTED INTO HER EYE)

REACTIONS (3)
  - Wrong technique in device usage process [Unknown]
  - Device breakage [Unknown]
  - Accidental exposure to product [Unknown]

NARRATIVE: CASE EVENT DATE: 20221201
